FAERS Safety Report 5268123-5 (Version None)
Quarter: 2007Q1

REPORT INFORMATION
  Report Type: 
  Country: None (occurrence: None)
  Receive Date: 20070319
  Receipt Date: 20070308
  Transmission Date: 20070707
  Serious: Yes (Hospitalization)
  Sender: FDA-Public Use
  Company Number: US-ELI_LILLY_AND_COMPANY-US200703002850

PATIENT
  Sex: Female

DRUGS (1)
  1. ZYPREXA [Suspect]
     Route: 064
     Dates: end: 20070101

REACTIONS (3)
  - DRUG EXPOSURE DURING PREGNANCY [None]
  - FEEDING DISORDER NEONATAL [None]
  - PREMATURE BABY [None]
